FAERS Safety Report 13335239 (Version 1)
Quarter: 2017Q1

REPORT INFORMATION
  Report Type: Spontaneous
  Country: CA (occurrence: CA)
  Receive Date: 20170315
  Receipt Date: 20170315
  Transmission Date: 20170428
  Serious: Yes (Life-Threatening, Hospitalization, Other)
  Sender: FDA-Public Use
  Company Number: CA-TEVA-748337ACC

PATIENT
  Age: 66 Year
  Sex: Female
  Weight: 61 kg

DRUGS (3)
  1. DEXTROSE. [Concomitant]
     Active Substance: DEXTROSE
  2. PACLITAXEL INJECTION [Concomitant]
     Active Substance: PACLITAXEL
  3. CARBOPLATIN INJECTION BP [Suspect]
     Active Substance: CARBOPLATIN
     Indication: OVARIAN NEOPLASM
     Dosage: 28 MILLIGRAM DAILY;
     Route: 042

REACTIONS (4)
  - Anaphylactic reaction [Unknown]
  - Dyspnoea [Unknown]
  - Angioedema [Unknown]
  - Epiglottitis [Unknown]
